FAERS Safety Report 20052094 (Version 2)
Quarter: 2021Q4

REPORT INFORMATION
  Report Type: Report from Study
  Country: BR (occurrence: BR)
  Receive Date: 20211110
  Receipt Date: 20211116
  Transmission Date: 20220303
  Serious: Yes (Death, Other)
  Sender: FDA-Public Use
  Company Number: BR-NOVARTISPH-NVSC2021BR256870

PATIENT
  Sex: Female

DRUGS (1)
  1. AMLODIPINE\VALSARTAN [Suspect]
     Active Substance: AMLODIPINE\VALSARTAN
     Indication: Hypertension
     Dosage: 1 DF, QD IN THE MORNING (START DATE: AROUND 10 YEARS AGO)
     Route: 048

REACTIONS (2)
  - Death [Fatal]
  - Diabetes mellitus [Unknown]

NARRATIVE: CASE EVENT DATE: 20210501
